FAERS Safety Report 8380002-3 (Version None)
Quarter: 2012Q1

REPORT INFORMATION
  Report Type: 
  Country: None (occurrence: None)
  Receive Date: 20120323
  Receipt Date: 20110404
  Transmission Date: 20120608
  Serious: Yes (Hospitalization)
  Sender: FDA-Public Use
  Company Number: 163-21880-11040461

PATIENT
  Age: 54 Year
  Sex: Female
  Weight: 62.5964 kg

DRUGS (3)
  1. IBUPROFEN [Concomitant]
  2. BLOOD (BLOOD AND RELATED PRODUCTS) [Concomitant]
  3. REVLIMID [Suspect]
     Indication: MYELODYSPLASTIC SYNDROME
     Dosage: 10 MG, 1 IN 1 D, PO
     Route: 048
     Dates: start: 20110312

REACTIONS (1)
  - PNEUMONIA [None]
